FAERS Safety Report 6079145-9 (Version None)
Quarter: 2009Q1

REPORT INFORMATION
  Report Type: 
  Country: None (occurrence: None)
  Receive Date: 20090216
  Receipt Date: 20090210
  Transmission Date: 20090719
  Serious: Yes (Other)
  Sender: FDA-Public Use
  Company Number: A0767696A

PATIENT
  Age: 68 Year
  Sex: Female

DRUGS (7)
  1. TYKERB [Suspect]
     Indication: HEPATIC NEOPLASM
     Dosage: 1250MG PER DAY
     Route: 048
     Dates: start: 20081101, end: 20090131
  2. TAXOTERE [Concomitant]
  3. CARVEDILOL [Concomitant]
  4. LISINOPRIL [Concomitant]
  5. ALPRAZOLAM [Concomitant]
  6. OMEPRAZOLE [Concomitant]
  7. BENADRYL [Concomitant]

REACTIONS (11)
  - AGEUSIA [None]
  - CONSTIPATION [None]
  - CONTUSION [None]
  - DIARRHOEA [None]
  - ERYTHEMA [None]
  - IMPAIRED HEALING [None]
  - INAPPROPRIATE SCHEDULE OF DRUG ADMINISTRATION [None]
  - NEUROPATHY PERIPHERAL [None]
  - PALMAR-PLANTAR ERYTHRODYSAESTHESIA SYNDROME [None]
  - PRURITUS [None]
  - SWELLING FACE [None]
